FAERS Safety Report 6934594-9 (Version None)
Quarter: 2010Q3

REPORT INFORMATION
  Report Type: 
  Country: None (occurrence: None)
  Receive Date: 20100820
  Receipt Date: 20100809
  Transmission Date: 20110219
  Serious: Yes (Disabling)
  Sender: FDA-Public Use
  Company Number: EG-GENENTECH-305389

PATIENT
  Sex: Female
  Weight: 101.5 kg

DRUGS (4)
  1. RITUXIMAB [Suspect]
     Indication: RHEUMATOID ARTHRITIS
     Dosage: 1 G, Q2W
     Route: 042
     Dates: start: 20080920
  2. MONO MACK [Concomitant]
     Indication: HYPERTENSION
     Dosage: UNK
     Route: 048
     Dates: start: 19920101
  3. LIPITOR [Concomitant]
     Indication: HYPERLIPIDAEMIA
     Dosage: UNK
     Route: 048
     Dates: start: 20020101
  4. LANTUS [Concomitant]
     Indication: DIABETES MELLITUS
     Dosage: 10 U, UNK
     Route: 058
     Dates: start: 19940101

REACTIONS (4)
  - CHEST PAIN [None]
  - NERVOUSNESS [None]
  - VARICOSE VEIN [None]
  - VISUAL ACUITY REDUCED [None]
